FAERS Safety Report 17685275 (Version 7)
Quarter: 2020Q4

REPORT INFORMATION
  Report Type: Report from Study
  Country: GR (occurrence: GR)
  Receive Date: 20200420
  Receipt Date: 20201115
  Transmission Date: 20210113
  Serious: Yes (Hospitalization)
  Sender: FDA-Public Use
  Company Number: GR-JNJFOC-20200412664

PATIENT
  Age: 28 Year
  Sex: Male
  Weight: 95 kg

DRUGS (4)
  1. LANSOPRAZOLE. [Concomitant]
     Active Substance: LANSOPRAZOLE
     Route: 048
     Dates: start: 20200503
  2. MESALAZINE [Concomitant]
     Active Substance: MESALAMINE
     Route: 048
     Dates: start: 20200428
  3. LANSOPRAZOLE. [Concomitant]
     Active Substance: LANSOPRAZOLE
     Indication: CROHN^S DISEASE
     Route: 048
     Dates: start: 2018, end: 20200405
  4. STELARA [Suspect]
     Active Substance: USTEKINUMAB
     Indication: CROHN^S DISEASE
     Route: 042
     Dates: start: 20200304

REACTIONS (2)
  - Pleural effusion [Recovered/Resolved]
  - Liver abscess [Recovered/Resolved]

NARRATIVE: CASE EVENT DATE: 20200404
